FAERS Safety Report 8803762 (Version 7)
Quarter: 2020Q4

REPORT INFORMATION
  Report Type: Spontaneous
  Country: US (occurrence: US)
  Receive Date: 20120924
  Receipt Date: 20201106
  Transmission Date: 20210114
  Serious: Yes (Hospitalization, Disabling, Other)
  Sender: FDA-Public Use
  Company Number: US-MERCK-1209USA005535

PATIENT
  Sex: Female
  Weight: 69.84 kg

DRUGS (8)
  1. FOSAMAX [Suspect]
     Active Substance: ALENDRONATE SODIUM
     Indication: OSTEOPENIA
     Dosage: 70 MG, QW
     Route: 048
     Dates: start: 20021208, end: 20031116
  2. FOSAMAX [Suspect]
     Active Substance: ALENDRONATE SODIUM
     Dosage: 70 MG, QW
     Route: 048
     Dates: start: 20061117, end: 20071012
  3. ALENDRONATE SODIUM. [Suspect]
     Active Substance: ALENDRONATE SODIUM
     Indication: OSTEOPOROSIS PROPHYLAXIS
     Dosage: 70 MG, QW
     Route: 048
     Dates: start: 20081108, end: 20090203
  4. LEVOTHYROXINE SODIUM. [Concomitant]
     Active Substance: LEVOTHYROXINE SODIUM
     Indication: HYPOTHYROIDISM
  5. ALENDRONATE SODIUM. [Suspect]
     Active Substance: ALENDRONATE SODIUM
     Indication: OSTEOPENIA
  6. PREDNISONE. [Concomitant]
     Active Substance: PREDNISONE
     Dosage: UNK
     Dates: start: 199912
  7. FOSAMAX [Suspect]
     Active Substance: ALENDRONATE SODIUM
     Indication: OSTEOPOROSIS PROPHYLAXIS
     Dosage: 70 MG, UNK
     Route: 048
  8. FOSAMAX [Suspect]
     Active Substance: ALENDRONATE SODIUM
     Dosage: 10 MG, QD
     Route: 048
     Dates: start: 20020217, end: 20021114

REACTIONS (38)
  - Femur fracture [Unknown]
  - Vitamin D deficiency [Not Recovered/Not Resolved]
  - Spondylolisthesis [Unknown]
  - Hyperaesthesia [Recovered/Resolved]
  - Fracture [Unknown]
  - Osteoarthritis [Unknown]
  - Osteoarthritis [Unknown]
  - Hysterectomy [Unknown]
  - Stress urinary incontinence [Not Recovered/Not Resolved]
  - Sleep apnoea syndrome [Not Recovered/Not Resolved]
  - Ligament sprain [Recovered/Resolved]
  - Posterior tibial tendon dysfunction [Not Recovered/Not Resolved]
  - Adverse event [Not Recovered/Not Resolved]
  - Intramedullary rod insertion [Unknown]
  - Loose tooth [Unknown]
  - Dyspepsia [Unknown]
  - Femur fracture [Unknown]
  - Intramedullary rod insertion [Unknown]
  - Idiopathic pulmonary fibrosis [Unknown]
  - Depression [Recovering/Resolving]
  - Muscular weakness [Not Recovered/Not Resolved]
  - Salpingo-oophorectomy bilateral [Unknown]
  - Impaired fasting glucose [Not Recovered/Not Resolved]
  - Osteoporosis [Unknown]
  - Bursitis [Unknown]
  - Herpes zoster [Recovered/Resolved]
  - Bone pain [Recovered/Resolved]
  - Idiopathic interstitial pneumonia [Not Recovered/Not Resolved]
  - Rib fracture [Unknown]
  - Calcium deficiency [Unknown]
  - Anxiety [Unknown]
  - Dermatophytosis of nail [Recovered/Resolved]
  - Fatigue [Recovered/Resolved]
  - Gastrooesophageal reflux disease [Not Recovered/Not Resolved]
  - Femur fracture [Unknown]
  - Depression [Unknown]
  - Hepatic cyst [Unknown]
  - Joint stiffness [Recovered/Resolved]

NARRATIVE: CASE EVENT DATE: 1995
